FAERS Safety Report 10774838 (Version 2)
Quarter: 2018Q2

REPORT INFORMATION
  Report Type: Spontaneous
  Country: US (occurrence: US)
  Receive Date: 20150209
  Receipt Date: 20180601
  Transmission Date: 20180711
  Serious: No
  Sender: FDA-Public Use
  Company Number: US-ASTRAZENECA-2015SE09248

PATIENT
  Age: 75 Year
  Sex: Female
  Weight: 64.4 kg

DRUGS (12)
  1. VITAMIN E [Concomitant]
     Active Substance: .ALPHA.-TOCOPHEROL
  2. COD-LIVER OIL [Concomitant]
     Active Substance: FISH OIL
  3. MIGLITOL. [Concomitant]
     Active Substance: MIGLITOL
  4. GINSENG [Concomitant]
     Active Substance: ASIAN GINSENG
  5. HUMALOG [Concomitant]
     Active Substance: INSULIN LISPRO
     Dosage: 30 UNITS IN THE MORNING AND 12 TO 20 UNITS DURING SUPPERTIME
     Route: 058
  6. BYETTA [Suspect]
     Active Substance: EXENATIDE
     Indication: DIABETES MELLITUS
     Dosage: ONE TIME PER DAY IN THE MORNING
     Route: 058
     Dates: start: 201804
  7. LIPITOR [Concomitant]
     Active Substance: ATORVASTATIN CALCIUM
  8. QUINAPRIL. [Concomitant]
     Active Substance: QUINAPRIL
     Indication: BLOOD PRESSURE MEASUREMENT
     Dosage: DAILY
     Route: 048
     Dates: start: 2003
  9. SYNTHROID [Concomitant]
     Active Substance: LEVOTHYROXINE SODIUM
     Indication: AUTOIMMUNE THYROIDITIS
  10. METOPROLOL. [Suspect]
     Active Substance: METOPROLOL
     Indication: BLOOD PRESSURE MEASUREMENT
     Dosage: DAILY
     Route: 048
  11. GLUTAMINE [Concomitant]
     Active Substance: GLUTAMINE
  12. BYETTA [Suspect]
     Active Substance: EXENATIDE
     Indication: DIABETES MELLITUS
     Route: 058
     Dates: start: 200909

REACTIONS (10)
  - Fall [Unknown]
  - Blood glucose decreased [Unknown]
  - Weight decreased [Unknown]
  - Concussion [Unknown]
  - Dizziness [Unknown]
  - Off label use [Unknown]
  - Product use in unapproved indication [Unknown]
  - Decreased appetite [Unknown]
  - Intentional product misuse [Unknown]
  - Blood glucose increased [Unknown]

NARRATIVE: CASE EVENT DATE: 2017
